FAERS Safety Report 4562218-7 (Version None)
Quarter: 2005Q1

REPORT INFORMATION
  Report Type: 
  Country: None (occurrence: None)
  Receive Date: 20050121
  Receipt Date: 20050111
  Transmission Date: 20050727
  Serious: Yes (Hospitalization, Other)
  Sender: FDA-Public Use
  Company Number: 2005010034

PATIENT
  Age: 86 Year
  Sex: Female
  Weight: 54.4316 kg

DRUGS (5)
  1. ZOLOFT [Suspect]
     Indication: DEPRESSION
     Dosage: 50 MG (50 MG, 1 IN 1 D), ORAL
     Route: 048
     Dates: start: 20041220, end: 20041221
  2. LOTREL [Concomitant]
  3. METOPROLOL TARTRATE [Concomitant]
  4. CLOPIDOGREL BISULFATE [Concomitant]
  5. CLONAZEPAM [Concomitant]

REACTIONS (10)
  - AGITATION [None]
  - BACK INJURY [None]
  - DIZZINESS [None]
  - FALL [None]
  - FEELING HOT [None]
  - LOSS OF CONSCIOUSNESS [None]
  - MEDICATION ERROR [None]
  - NERVOUSNESS [None]
  - PSYCHOMOTOR HYPERACTIVITY [None]
  - SKELETAL INJURY [None]
